FAERS Safety Report 8764320 (Version 5)
Quarter: 2012Q4

REPORT INFORMATION
  Report Type: 
  Country: JP (occurrence: JP)
  Receive Date: 20120831
  Receipt Date: 20121009
  Transmission Date: 20130627
  Serious: Yes (Hospitalization)
  Sender: FDA-Public Use
  Company Number: JP-INCYTE CORPORATION-2012IN000561

PATIENT
  Age: 67 Year
  Sex: Female
  Weight: 51 kg

DRUGS (27)
  1. INC424 [Suspect]
     Indication: MYELOFIBROSIS
     Dosage: 30 mg, bid
     Route: 048
     Dates: start: 20111212, end: 20120331
  2. INC424 [Suspect]
     Dosage: UNK
     Route: 048
     Dates: start: 20120402, end: 20120409
  3. INC424 [Suspect]
     Dosage: 20 mg, qd
     Dates: start: 20120525, end: 20120818
  4. PREDNISOLONE [Suspect]
     Indication: PLATELET COUNT DECREASED
     Dosage: 10 mg, qd
     Route: 048
     Dates: start: 20040518
  5. EXJADE [Concomitant]
     Dosage: UNK
     Dates: start: 20100524, end: 20120521
  6. TAKEPRON [Concomitant]
     Dosage: UNK
     Dates: start: 20081014
  7. LASIX [Concomitant]
     Dosage: UNK
     Dates: start: 20030811
  8. MS CONTIN [Concomitant]
     Dosage: UNK
     Dates: start: 20091214
  9. OPSO [Concomitant]
     Dosage: UNK
     Dates: start: 20091214
  10. HALCION [Concomitant]
     Dosage: UNK
     Dates: start: 20041207
  11. MAGNESIUM OXIDE [Concomitant]
     Dosage: UNK
     Dates: start: 20080715
  12. ACETAMINOPHEN [Concomitant]
     Dosage: UNK
     Dates: start: 20120402
  13. METHYCOBAL [Concomitant]
     Dosage: UNK
     Dates: start: 20120402
  14. CELECOXIB [Concomitant]
     Dosage: UNK
     Dates: start: 20120402, end: 20120409
  15. PURSENNID [Concomitant]
     Dosage: UNK
     Dates: start: 20120424
  16. LYRICA [Concomitant]
     Dosage: UNK
     Dates: start: 20120424
  17. FEBUXOSTAT [Concomitant]
     Dosage: UNK
     Dates: start: 20120523
  18. SOSEGON [Concomitant]
     Dosage: UNK
     Dates: start: 20120820
  19. MAXALT [Concomitant]
     Dosage: UNK
     Dates: start: 20120604
  20. ALOSENN [Concomitant]
     Dosage: UNK
     Dates: start: 20040523
  21. TEICOPLANIN [Concomitant]
     Dosage: UNK
     Dates: start: 20120827
  22. TERRANAS [Concomitant]
     Dosage: UNK
     Dates: start: 20120604
  23. ZOSYN [Concomitant]
     Dosage: UNK
     Dates: start: 20120820, end: 20120827
  24. MERISLON [Concomitant]
     Dosage: UNK
     Dates: start: 20120528
  25. LAXOBERON [Concomitant]
     Dosage: UNK
     Dates: start: 20120521
  26. AMOBAN [Concomitant]
     Dosage: UNK
     Dates: start: 20120424
  27. MEROPENEM [Concomitant]
     Dosage: UNK
     Dates: start: 20120827

REACTIONS (11)
  - Enterocolitis [Recovered/Resolved]
  - Pyrexia [Not Recovered/Not Resolved]
  - Cholecystitis acute [Recovered/Resolved]
  - Herpes zoster [Recovered/Resolved]
  - Urinary tract infection [Recovered/Resolved]
  - Pneumonia [Recovered/Resolved]
  - Pneumonia bacterial [Recovered/Resolved]
  - Arthralgia [None]
  - Mitral valve disease [None]
  - Pulmonary congestion [None]
  - Myelofibrosis [None]
